FAERS Safety Report 9715125 (Version 1)
Quarter: 2013Q4

REPORT INFORMATION
  Report Type: Spontaneous
  Country: US (occurrence: US)
  Receive Date: 20131126
  Receipt Date: 20131126
  Transmission Date: 20140711
  Serious: Yes (Hospitalization, Other)
  Sender: FDA-Public Use
  Company Number: US-RB-060961-13

PATIENT
  Age: 0 Year
  Sex: Male

DRUGS (10)
  1. SUBOXONE FILM [Suspect]
     Indication: DRUG DEPENDENCE
     Dosage: SUBOXONE FILM
     Route: 064
     Dates: start: 20130108, end: 2013
  2. GENERIC BUPRENORPHINE [Suspect]
     Indication: DRUG DEPENDENCE
     Route: 064
     Dates: start: 2013, end: 20131008
  3. GENERIC BUPRENORPHINE [Suspect]
     Route: 063
     Dates: start: 20131008
  4. LEVOTHYROXINE [Concomitant]
     Indication: HYPOTHYROIDISM
     Dosage: DAILY DOSE 75-100 MCG.
     Route: 064
     Dates: start: 2013, end: 20131008
  5. LEVOTHYROXINE [Concomitant]
     Dosage: DAILY DOSE 75-100 MCG.
     Route: 063
     Dates: start: 20131008
  6. PROTONIX [Concomitant]
     Dosage: UNKNOWN DAILY DOSING.
     Route: 064
     Dates: start: 2013, end: 20131008
  7. PROTONIX [Concomitant]
     Indication: GASTROOESOPHAGEAL REFLUX DISEASE
     Dosage: UNKNOWN DAILY DOSING.
     Route: 063
     Dates: start: 20131008
  8. AZITHROMYCIN [Concomitant]
     Indication: RESPIRATORY TRACT INFECTION
     Route: 064
     Dates: start: 20130426, end: 20130501
  9. SUDAFED [Concomitant]
     Indication: PRODUCT USED FOR UNKNOWN INDICATION
     Dosage: UNKNOWN DOSING DETAILS.
     Route: 064
     Dates: start: 2013, end: 2013
  10. MOTHER^S MILK TEA [Concomitant]
     Indication: BREAST FEEDING
     Dosage: UNKNOWN DOSING DETAILS.
     Route: 063
     Dates: start: 20131024

REACTIONS (4)
  - Foetal exposure during pregnancy [Recovered/Resolved]
  - Neonatal respiratory distress syndrome [Recovered/Resolved]
  - Exposure during breast feeding [Not Recovered/Not Resolved]
  - Jaundice neonatal [Recovered/Resolved]
